FAERS Safety Report 14845893 (Version 5)
Quarter: 2018Q3

REPORT INFORMATION
  Report Type: Report from Study
  Country: US (occurrence: US)
  Receive Date: 20180504
  Receipt Date: 20180831
  Transmission Date: 20181010
  Serious: Yes (Death, Hospitalization, Other)
  Sender: FDA-Public Use
  Company Number: US-BRISTOL-MYERS SQUIBB COMPANY-BMS-2018-038867

PATIENT
  Age: 58 Year
  Sex: Female
  Weight: 99.7 kg

DRUGS (2)
  1. BLINATUMOMAB [Suspect]
     Active Substance: BLINATUMOMAB
     Indication: B PRECURSOR TYPE ACUTE LEUKAEMIA
     Dosage: 9 UG/DAY CONTINUOUS INFUSION ON DAYS 1?7 AND THEN 28UG/DAY CONTINUOUS INFUSION ON DAYS 8?28.
     Route: 042
     Dates: start: 20180220, end: 20180512
  2. NIVOLUMAB [Suspect]
     Active Substance: NIVOLUMAB
     Indication: B PRECURSOR TYPE ACUTE LEUKAEMIA
     Dosage: 240MG OVER 60 MINUTES ON DAY 11 AND THEN EVERY TWO WEEKS
     Route: 042
     Dates: end: 20180530

REACTIONS (5)
  - Transient ischaemic attack [Recovered/Resolved]
  - Infusion related reaction [Recovered/Resolved]
  - Sepsis [Recovered/Resolved]
  - Hypotension [Recovering/Resolving]
  - Graft versus host disease [Fatal]

NARRATIVE: CASE EVENT DATE: 20180331
